FAERS Safety Report 6480141-8 (Version None)
Quarter: 2009Q4

REPORT INFORMATION
  Report Type: 
  Country: None (occurrence: None)
  Receive Date: 20091208
  Receipt Date: 20091203
  Transmission Date: 20100525
  Serious: Yes (Other)
  Sender: FDA-Public Use
  Company Number: BE-BAYER-200940585GPV

PATIENT
  Age: 59 Year
  Sex: Male
  Weight: 87 kg

DRUGS (8)
  1. NEXAVAR [Suspect]
     Indication: HEPATIC NEOPLASM MALIGNANT
     Dosage: TOTAL DAILY DOSE: 800 MG
     Dates: start: 20091010, end: 20091120
  2. NEXAVAR [Suspect]
     Dates: start: 20091127
  3. METFORMIN HCL [Concomitant]
  4. UNI DIAMICRON [Concomitant]
  5. AMLOR [Concomitant]
  6. OMEPRAZOLE [Concomitant]
  7. PRAVASINE [Concomitant]
  8. COVERSYL [Concomitant]

REACTIONS (3)
  - PALMAR-PLANTAR ERYTHRODYSAESTHESIA SYNDROME [None]
  - SUDDEN HEARING LOSS [None]
  - TINNITUS [None]
